FAERS Safety Report 7302260-6 (Version None)
Quarter: 2011Q1

REPORT INFORMATION
  Report Type: 
  Country: None (occurrence: None)
  Receive Date: 20110218
  Receipt Date: 20110208
  Transmission Date: 20110831
  Serious: Yes (Death, Hospitalization)
  Sender: FDA-Public Use
  Company Number: US-BRISTOL-MYERS SQUIBB COMPANY-15549181

PATIENT
  Age: 56 Year
  Sex: Male
  Weight: 70 kg

DRUGS (8)
  1. PACLITAXEL [Suspect]
     Indication: NON-SMALL CELL LUNG CANCER
     Dosage: TAKEN OFF 06OCT10
     Route: 042
     Dates: start: 20100910, end: 20100910
  2. REGLAN [Concomitant]
  3. CETUXIMAB [Suspect]
     Indication: NON-SMALL CELL LUNG CANCER
     Dosage: TAKEN OFF 06OCT10
     Route: 042
     Dates: start: 20100910, end: 20100910
  4. SENNA-S [Concomitant]
  5. MAGNESIUM OXIDE [Concomitant]
  6. CARBOPLATIN [Suspect]
     Indication: NON-SMALL CELL LUNG CANCER
     Dosage: TAKEN OFF 06OCT10
     Route: 042
     Dates: start: 20100910, end: 20100910
  7. OXYCONTIN [Concomitant]
  8. OXYCODONE [Concomitant]

REACTIONS (5)
  - BONE PAIN [None]
  - PNEUMONITIS [None]
  - NEOPLASM MALIGNANT [None]
  - DYSPNOEA [None]
  - PLEURAL EFFUSION [None]
